FAERS Safety Report 4691469-6 (Version None)
Quarter: 2005Q2

REPORT INFORMATION
  Report Type: 
  Country: None (occurrence: None)
  Receive Date: 20050613
  Receipt Date: 20050301
  Transmission Date: 20051028
  Serious: Yes (Hospitalization)
  Sender: FDA-Public Use
  Company Number: S05-USA-01146-01

PATIENT
  Age: 27 Year
  Sex: Female

DRUGS (4)
  1. LEXAPRO [Suspect]
     Indication: ANXIETY
     Dosage: 10 MG QD PO
     Route: 048
     Dates: start: 20040701
  2. LEXAPRO [Suspect]
     Indication: DEPRESSION
     Dosage: 10 MG QD PO
     Route: 048
     Dates: start: 20040701
  3. TRIVORA-21 [Concomitant]
  4. DYNACIN (MINOCYCLINE HYDROCHLORIDE) [Concomitant]

REACTIONS (1)
  - NEPHROLITHIASIS [None]
